FAERS Safety Report 5245654-5 (Version None)
Quarter: 2007Q1

REPORT INFORMATION
  Report Type: 
  Country: None (occurrence: None)
  Receive Date: 20070223
  Receipt Date: 20070212
  Transmission Date: 20070707
  Serious: Yes (Other)
  Sender: FDA-Public Use
  Company Number: FR-PFIZER INC-2007012004

PATIENT
  Sex: Female

DRUGS (4)
  1. ZARONTIN SYRUP [Suspect]
  2. LAMICTAL [Concomitant]
  3. KEPPRA [Concomitant]
  4. DEPAKENE [Concomitant]

REACTIONS (1)
  - PETIT MAL EPILEPSY [None]
